FAERS Safety Report 9459521 (Version 2)
Quarter: 2013Q3

REPORT INFORMATION
  Report Type: Spontaneous
  Country: US (occurrence: US)
  Receive Date: 20130815
  Receipt Date: 20130904
  Transmission Date: 20140515
  Serious: No
  Sender: FDA-Public Use
  Company Number: US-PFIZER INC-2013235563

PATIENT
  Age: 58 Year
  Sex: Female

DRUGS (6)
  1. DEPO-PROVERA [Suspect]
     Indication: ENDOMETRIOSIS
     Dosage: 200 MG, MONTHLY
     Route: 030
     Dates: start: 201304
  2. ALBUTEROL [Concomitant]
     Dosage: UNK, AS NEEDED
  3. ATENOLOL [Concomitant]
     Dosage: 50 MG, 1X/DAY
  4. DIOVAN [Concomitant]
     Dosage: 160-125 DAILY
  5. ASA [Concomitant]
     Dosage: 81 MG, 1X/DAY
  6. POTASSIUM [Concomitant]
     Dosage: 2 DF, 1X/DAY

REACTIONS (4)
  - Product quality issue [Not Recovered/Not Resolved]
  - Injection site rash [Not Recovered/Not Resolved]
  - Injection site erythema [Recovered/Resolved]
  - Injection site haemorrhage [Recovered/Resolved]
